FAERS Safety Report 6242521-5 (Version None)
Quarter: 2009Q2

REPORT INFORMATION
  Report Type: 
  Country: None (occurrence: None)
  Receive Date: 20090624
  Receipt Date: 20090617
  Transmission Date: 20091009
  Serious: Yes (Hospitalization)
  Sender: FDA-Public Use
  Company Number: TW-ROCHE-544962

PATIENT
  Sex: Male
  Weight: 59 kg

DRUGS (9)
  1. CAPECITABINE [Suspect]
     Indication: METASTATIC GASTRIC CANCER
     Dosage: DOSAGE FORM: FILM-COATED TABLET, GIVEN ON DAY 1 - 10 EVERY 2 WEEKS.
     Route: 048
     Dates: start: 20071106, end: 20080126
  2. OXALIPLATIN [Suspect]
     Indication: METASTATIC GASTRIC CANCER
     Dosage: DOSAGE FORM REPORTED AS INFUSION. GIVEN ON DAY ONE EVERY 2 WEEKS.
     Route: 042
     Dates: start: 20071106, end: 20080116
  3. DOMPERIDONE [Concomitant]
     Dates: start: 20080126, end: 20080128
  4. KOLANTYL [Concomitant]
     Dates: start: 20080130, end: 20080210
  5. ACTIVATED DIMETHYLPOLYSILOXANE [Concomitant]
     Dates: start: 20080130, end: 20080210
  6. MEDROXYPROGESTERONE [Concomitant]
     Dates: start: 20080108
  7. LORAZEPAM [Concomitant]
     Dates: start: 20071218
  8. METOCLOPRAMIDE [Concomitant]
     Dates: start: 20071106
  9. ESOMEPRAZOLE MAGNESIUM [Concomitant]
     Dates: start: 20071012

REACTIONS (3)
  - ACUTE PRERENAL FAILURE [None]
  - DIARRHOEA [None]
  - PYREXIA [None]
